FAERS Safety Report 15344291 (Version 1)
Quarter: 2018Q3

REPORT INFORMATION
  Report Type: Spontaneous
  Country: AU (occurrence: FR)
  Receive Date: 20180903
  Receipt Date: 20180903
  Transmission Date: 20181010
  Serious: Yes (Other)
  Sender: FDA-Public Use
  Company Number: FR-TEVA-2018-FR-950890

PATIENT
  Age: 74 Year
  Sex: Male

DRUGS (3)
  1. TAMSULOSIN [Suspect]
     Active Substance: TAMSULOSIN
     Indication: BENIGN PROSTATIC HYPERPLASIA
     Dosage: 1 DOSAGE FORMS DAILY;
     Route: 048
     Dates: end: 20171205
  2. JOSIR [Suspect]
     Active Substance: TAMSULOSIN
     Dosage: 1 DOSAGE FORMS DAILY;
     Route: 048
     Dates: start: 20171206
  3. COSOPT [Concomitant]
     Active Substance: DORZOLAMIDE HYDROCHLORIDE\TIMOLOL MALEATE
     Indication: PRODUCT USED FOR UNKNOWN INDICATION
     Dosage: UNK UNK, UNKNOWN FREQ.
     Route: 065

REACTIONS (3)
  - Dysuria [Unknown]
  - Urinary retention [Unknown]
  - Arthralgia [Unknown]

NARRATIVE: CASE EVENT DATE: 20171205
